APPROVED DRUG PRODUCT: LENALIDOMIDE
Active Ingredient: LENALIDOMIDE
Strength: 20MG
Dosage Form/Route: CAPSULE;ORAL
Application: A201452 | Product #006 | TE Code: AB
Applicant: ARROW INTERNATIONAL LTD
Approved: Mar 6, 2023 | RLD: No | RS: No | Type: RX